FAERS Safety Report 5067459-0 (Version None)
Quarter: 2006Q3

REPORT INFORMATION
  Report Type: 
  Country: None (occurrence: None)
  Receive Date: 20060727
  Receipt Date: 20060717
  Transmission Date: 20061208
  Serious: Yes (Other)
  Sender: FDA-Public Use
  Company Number: 2006078761

PATIENT
  Age: 61 Year
  Sex: Female
  Weight: 60 kg

DRUGS (8)
  1. LYRICA [Suspect]
     Indication: NEURALGIA
     Dosage: 150 MG (50 MG, 3 IN 1 D), ORAL
     Route: 048
     Dates: start: 20060501, end: 20060520
  2. TAMBOCOR [Concomitant]
  3. COSAAR PLUS (HYDROCHLOROTHIAZIDE, LOSARTAN POTASSIUM) [Concomitant]
  4. PLAVIX [Concomitant]
  5. BUPRENORPHINE HCL [Concomitant]
  6. TRAMADOL HCL [Concomitant]
  7. PREMARIN [Concomitant]
  8. DIGOXIN [Concomitant]

REACTIONS (1)
  - SINUS TACHYCARDIA [None]
